FAERS Safety Report 20354774 (Version 2)
Quarter: 2022Q1

REPORT INFORMATION
  Report Type: Spontaneous
  Country: US (occurrence: US)
  Receive Date: 20220120
  Receipt Date: 20220207
  Transmission Date: 20220423
  Serious: Yes (Other)
  Sender: FDA-Public Use
  Company Number: US-HORMOSAN PHARMA GMBH-2022-00395

PATIENT

DRUGS (1)
  1. QUETIAPINE FUMARATE [Suspect]
     Active Substance: QUETIAPINE FUMARATE
     Indication: Product used for unknown indication
     Dosage: UNK
     Route: 065

REACTIONS (5)
  - Dehydration [Unknown]
  - Seizure [Unknown]
  - Weight increased [Unknown]
  - Fluid retention [Unknown]
  - Cardiac discomfort [Unknown]
